FAERS Safety Report 8352584-9 (Version None)
Quarter: 2012Q2

REPORT INFORMATION
  Report Type: 
  Country: None (occurrence: None)
  Receive Date: 20120511
  Receipt Date: 20120507
  Transmission Date: 20120825
  Serious: No
  Sender: FDA-Public Use
  Company Number: US-COVIDIEN/TYCO HEALTHCARE/MALLINCKRODT-T201201649

PATIENT
  Sex: Male

DRUGS (2)
  1. FENTANYL-100 [Suspect]
     Indication: BACK PAIN
     Dosage: 100 UG/HR, Q 72 HRS
     Route: 062
     Dates: start: 20120502
  2. FENTANYL CITRATE [Concomitant]
     Route: 062

REACTIONS (2)
  - WITHDRAWAL SYNDROME [None]
  - DRUG EFFECT DELAYED [None]
